FAERS Safety Report 11639162 (Version 2)
Quarter: 2015Q4

REPORT INFORMATION
  Report Type: Report from Study
  Country: NL (occurrence: NL)
  Receive Date: 20151019
  Receipt Date: 20151020
  Transmission Date: 20160304
  Serious: Yes (Other)
  Sender: FDA-Public Use
  Company Number: NL-AUROBINDO-AUR-APL-2015-09380

PATIENT
  Age: 5 Month
  Sex: Female

DRUGS (1)
  1. ATENOLOL. [Suspect]
     Active Substance: ATENOLOL
     Indication: INFANTILE HAEMANGIOMA
     Dosage: UNK UNK, DAILY
     Route: 048

REACTIONS (3)
  - Gait disturbance [Unknown]
  - Hypotonia [Unknown]
  - Hypoglycaemia [Recovered/Resolved]
